FAERS Safety Report 10904155 (Version 16)
Quarter: 2018Q2

REPORT INFORMATION
  Report Type: Report from Study
  Country: US (occurrence: US)
  Receive Date: 20150311
  Receipt Date: 20180502
  Transmission Date: 20180711
  Serious: Yes (Other)
  Sender: FDA-Public Use
  Company Number: US-SA-2015SA019595

PATIENT
  Age: 52 Year
  Sex: Female

DRUGS (8)
  1. LEMTRADA [Suspect]
     Active Substance: ALEMTUZUMAB
     Indication: MULTIPLE SCLEROSIS RELAPSE
     Route: 041
     Dates: start: 20150202, end: 20150202
  2. AMPYRA [Suspect]
     Active Substance: DALFAMPRIDINE
     Route: 065
  3. LEMTRADA [Suspect]
     Active Substance: ALEMTUZUMAB
     Indication: MULTIPLE SCLEROSIS RELAPSE
     Route: 041
     Dates: start: 20160215, end: 20160215
  4. ZANTAC [Concomitant]
     Active Substance: RANITIDINE HYDROCHLORIDE
     Indication: PREMEDICATION
  5. LEMTRADA [Suspect]
     Active Substance: ALEMTUZUMAB
     Indication: MULTIPLE SCLEROSIS RELAPSE
     Route: 041
     Dates: start: 20160217, end: 20160218
  6. METHIMAZOLE. [Concomitant]
     Active Substance: METHIMAZOLE
     Route: 065
     Dates: start: 20180102
  7. LEMTRADA [Suspect]
     Active Substance: ALEMTUZUMAB
     Indication: MULTIPLE SCLEROSIS RELAPSE
     Route: 041
     Dates: start: 20150126, end: 20150127
  8. LEMTRADA [Suspect]
     Active Substance: ALEMTUZUMAB
     Indication: MULTIPLE SCLEROSIS RELAPSE
     Route: 041
     Dates: start: 20150129, end: 20150130

REACTIONS (31)
  - Fatigue [Unknown]
  - Weight decreased [Unknown]
  - Uhthoff^s phenomenon [Unknown]
  - Upper limb fracture [Unknown]
  - Memory impairment [Recovering/Resolving]
  - Feeling abnormal [Not Recovered/Not Resolved]
  - Blood thyroid stimulating hormone decreased [Unknown]
  - Burning sensation [Recovering/Resolving]
  - Malaise [Not Recovered/Not Resolved]
  - Oedema peripheral [Recovered/Resolved]
  - Neck pain [Not Recovered/Not Resolved]
  - Haematochezia [Unknown]
  - Autoimmune disorder [Unknown]
  - Pain in extremity [Recovering/Resolving]
  - Contusion [Unknown]
  - Multiple sclerosis relapse [Recovered/Resolved]
  - Stomatitis [Recovered/Resolved]
  - Ill-defined disorder [Recovered/Resolved]
  - Hypothyroidism [Unknown]
  - Eye infection [Unknown]
  - Laceration [Unknown]
  - Confusional state [Unknown]
  - Mass [Unknown]
  - Migraine [Not Recovered/Not Resolved]
  - Limb discomfort [Not Recovered/Not Resolved]
  - Asthenia [Unknown]
  - Erythema [Not Recovered/Not Resolved]
  - Dysphonia [Not Recovered/Not Resolved]
  - Hypersensitivity [Unknown]
  - Fall [Unknown]
  - Headache [Recovered/Resolved]

NARRATIVE: CASE EVENT DATE: 2015
